FAERS Safety Report 12645653 (Version 3)
Quarter: 2016Q3

REPORT INFORMATION
  Report Type: Report from Study
  Country: US (occurrence: US)
  Receive Date: 20160811
  Receipt Date: 20160916
  Transmission Date: 20161109
  Serious: Yes (Hospitalization, Other)
  Sender: FDA-Public Use
  Company Number: US-ABBVIE-16P-163-1695741-00

PATIENT
  Sex: Female
  Weight: 57.66 kg

DRUGS (4)
  1. MULTIVITAMIN [Concomitant]
     Active Substance: VITAMINS
     Indication: VITAMIN SUPPLEMENTATION
     Route: 048
  2. LUPRON DEPOT [Suspect]
     Active Substance: LEUPROLIDE ACETATE
     Indication: ENDOMETRIOSIS
     Route: 050
     Dates: start: 2004, end: 2006
  3. LUPRON DEPOT [Suspect]
     Active Substance: LEUPROLIDE ACETATE
     Route: 050
     Dates: start: 201608
  4. MELATONIN [Concomitant]
     Active Substance: MELATONIN
     Indication: SLEEP DISORDER THERAPY
     Route: 048

REACTIONS (13)
  - Oocyte harvest [Recovered/Resolved]
  - Hot flush [Recovered/Resolved]
  - Endometriosis [Not Recovered/Not Resolved]
  - Exposure during pregnancy [Unknown]
  - Endometriosis [Recovered/Resolved]
  - In vitro fertilisation [Recovered/Resolved]
  - Mood swings [Recovered/Resolved]
  - Escherichia infection [Recovered/Resolved]
  - Oocyte harvest [Recovered/Resolved]
  - Cyst [Recovered/Resolved]
  - Endometriosis [Recovered/Resolved]
  - Pelvic pain [Not Recovered/Not Resolved]
  - Caesarean section [Recovered/Resolved]

NARRATIVE: CASE EVENT DATE: 2004
